FAERS Safety Report 8504181-X (Version None)
Quarter: 2012Q3

REPORT INFORMATION
  Report Type: 
  Country: None (occurrence: None)
  Receive Date: 20120711
  Receipt Date: 20120705
  Transmission Date: 20120928
  Serious: No
  Sender: FDA-Public Use
  Company Number: US-TEVA-347316USA

PATIENT
  Age: 56 Year
  Sex: Female

DRUGS (4)
  1. PROAIR HFA [Suspect]
     Dates: start: 20120702, end: 20120702
  2. FLONASE [Concomitant]
     Route: 045
  3. VENTOLIN HFA [Concomitant]
     Route: 055
  4. FENPROPOREX [Concomitant]

REACTIONS (6)
  - DYSARTHRIA [None]
  - EYE DISORDER [None]
  - CONFUSIONAL STATE [None]
  - WRONG DRUG ADMINISTERED [None]
  - CHEST DISCOMFORT [None]
  - PARAESTHESIA [None]
